FAERS Safety Report 6760521-3 (Version None)
Quarter: 2010Q2

REPORT INFORMATION
  Report Type: 
  Country: None (occurrence: None)
  Receive Date: 20100607
  Receipt Date: 20100607
  Transmission Date: 20101027
  Serious: Yes (Hospitalization)
  Sender: FDA-Public Use
  Company Number: None

PATIENT
  Age: 65 Year
  Sex: Male
  Weight: 130 kg

DRUGS (2)
  1. VANCOMYCIN [Suspect]
     Indication: SEPSIS
     Dosage: 2.25 GM IN 500 ML NS ONCE 042
     Dates: start: 20100530
  2. VANCOMYCIN [Suspect]
     Indication: UROSEPSIS
     Dosage: 2.25 GM IN 500 ML NS ONCE 042
     Dates: start: 20100530

REACTIONS (2)
  - HYPOTENSION [None]
  - INFUSION RELATED REACTION [None]
